FAERS Safety Report 17282255 (Version 1)
Quarter: 2020Q1

REPORT INFORMATION
  Report Type: Spontaneous
  Country: LU (occurrence: LU)
  Receive Date: 20200117
  Receipt Date: 20200117
  Transmission Date: 20200409
  Serious: Yes (Hospitalization)
  Sender: FDA-Public Use
  Company Number: LU-ACCORD-169524

PATIENT
  Age: 41 Year
  Sex: Female
  Weight: 61 kg

DRUGS (1)
  1. METHOTREXATE. [Suspect]
     Active Substance: METHOTREXATE
     Indication: ALOPECIA
     Route: 048
     Dates: end: 20191011

REACTIONS (3)
  - Arrhythmia [Recovered/Resolved]
  - Stress cardiomyopathy [Recovered/Resolved]
  - Cardiac arrest [Recovered/Resolved]

NARRATIVE: CASE EVENT DATE: 20191011
